FAERS Safety Report 14533877 (Version 1)
Quarter: 2018Q1

REPORT INFORMATION
  Report Type: Spontaneous
  Country: GB (occurrence: GB)
  Receive Date: 20180215
  Receipt Date: 20180215
  Transmission Date: 20180509
  Serious: Yes (Disabling)
  Sender: FDA-Public Use
  Company Number: GB-CIPLA LTD.-2018GB03727

PATIENT

DRUGS (2)
  1. AMLODIPINE [Suspect]
     Active Substance: AMLODIPINE BESYLATE
     Indication: ESSENTIAL HYPERTENSION
     Dosage: 10 MG, UNK DOSE REDUCED TO 5MG
     Route: 048
  2. SIMVASTATIN. [Interacting]
     Active Substance: SIMVASTATIN
     Indication: HYPERLIPIDAEMIA
     Dosage: 20 MG, DAILY AT NIGHT
     Route: 048

REACTIONS (5)
  - Dysarthria [Recovered/Resolved]
  - Confusional state [Recovered/Resolved]
  - Drug interaction [Unknown]
  - Myopathy [Recovered/Resolved]
  - Ataxia [Recovered/Resolved]
